FAERS Safety Report 12170633 (Version 1)
Quarter: 2016Q1

REPORT INFORMATION
  Report Type: Spontaneous
  Country: US (occurrence: US)
  Receive Date: 20160311
  Receipt Date: 20160311
  Transmission Date: 20160526
  Serious: Yes (Other)
  Sender: FDA-Public Use
  Company Number: US-BAYER-2016-040310

PATIENT
  Age: 51 Year
  Sex: Female
  Weight: 70.3 kg

DRUGS (7)
  1. BAYER GENUINE ASPIRIN [Suspect]
     Active Substance: ASPIRIN
     Dosage: UNK
     Route: 048
  2. VITAMIN D3 [Concomitant]
     Active Substance: CHOLECALCIFEROL
     Dosage: UNK
  3. PREPARATION H [PHENYLEPHRINE HYDROCHLORIDE,SHARK-LIVER OIL] [Concomitant]
     Dosage: UNK
  4. CITRACAL MAXIMUM [Suspect]
     Active Substance: CALCIUM CITRATE\CHOLECALCIFEROL
     Indication: VITAMIN SUPPLEMENTATION
     Dosage: 1 DF, BID
     Route: 048
     Dates: start: 20030523
  5. LOTEMAX [Concomitant]
     Active Substance: LOTEPREDNOL ETABONATE
     Dosage: UNK
  6. REFRESH P.M. [Concomitant]
     Active Substance: MINERAL OIL\PETROLATUM
     Dosage: UNK
  7. MURO 128 [Concomitant]
     Active Substance: SODIUM CHLORIDE
     Dosage: UNK

REACTIONS (7)
  - Foreign body [Recovered/Resolved]
  - Product use issue [None]
  - White blood cell count decreased [None]
  - Corneal disorder [None]
  - Therapeutic response unexpected [None]
  - Keratectomy [None]
  - Product use issue [None]

NARRATIVE: CASE EVENT DATE: 20030523
